FAERS Safety Report 5621377-5 (Version None)
Quarter: 2008Q1

REPORT INFORMATION
  Report Type: 
  Country: None (occurrence: None)
  Receive Date: 20080129
  Receipt Date: 20080111
  Transmission Date: 20080703
  Serious: No
  Sender: FDA-Public Use
  Company Number: WAES 0801USA00061

PATIENT
  Age: 15 Year
  Sex: Male

DRUGS (1)
  1. INJ IVOMEC PLUS UNK [Suspect]
     Indication: ACCIDENTAL EXPOSURE
     Dosage: 3 ML/1X/IM
     Route: 030
     Dates: start: 20071227

REACTIONS (2)
  - ACCIDENTAL EXPOSURE [None]
  - BURNING SENSATION [None]
